FAERS Safety Report 12555811 (Version 1)
Quarter: 2016Q3

REPORT INFORMATION
  Report Type: Spontaneous
  Country: DE (occurrence: DE)
  Receive Date: 20160714
  Receipt Date: 20160714
  Transmission Date: 20161109
  Serious: Yes (Hospitalization)
  Sender: FDA-Public Use
  Company Number: DE-BIOVITRUM-2016DE0520

PATIENT
  Sex: Female
  Weight: 30 kg

DRUGS (3)
  1. KINERET [Suspect]
     Active Substance: ANAKINRA
     Indication: HISTIOCYTOSIS HAEMATOPHAGIC
     Dates: start: 20160502, end: 20160617
  2. TACROLIMUS. [Concomitant]
     Active Substance: TACROLIMUS
     Indication: PROPHYLAXIS AGAINST TRANSPLANT REJECTION
     Dates: start: 20151227
  3. VALGANCICLOVIR. [Concomitant]
     Active Substance: VALGANCICLOVIR
     Indication: CYTOMEGALOVIRUS INFECTION
     Dates: start: 20160107

REACTIONS (5)
  - Alopecia [Unknown]
  - Transaminases increased [Recovered/Resolved]
  - Hepatocellular injury [Unknown]
  - Human herpesvirus 6 infection [Unknown]
  - Gamma-glutamyltransferase increased [Recovered/Resolved]
